FAERS Safety Report 21232435 (Version 1)
Quarter: 2022Q3

REPORT INFORMATION
  Report Type: Spontaneous
  Country: US (occurrence: None)
  Receive Date: 20220818
  Receipt Date: 20220818
  Transmission Date: 20221027
  Serious: Yes (Hospitalization)
  Sender: FDA-Public Use
  Company Number: None

PATIENT
  Sex: Female

DRUGS (1)
  1. DROXIDOPA [Suspect]
     Active Substance: DROXIDOPA
     Indication: Parkinson^s disease
     Dosage: 600MG THREE TIMES DAILY ORAL?
     Route: 048
     Dates: start: 202201

REACTIONS (3)
  - Dementia with Lewy bodies [None]
  - Decreased appetite [None]
  - Fall [None]
